FAERS Safety Report 8298648-X (Version None)
Quarter: 2012Q2

REPORT INFORMATION
  Report Type: 
  Country: None (occurrence: None)
  Receive Date: 20120419
  Receipt Date: 20120405
  Transmission Date: 20120825
  Serious: Yes (Other)
  Sender: FDA-Public Use
  Company Number: JP-MYLANLABS-2012S1006264

PATIENT
  Age: 80 Year
  Sex: Female

DRUGS (5)
  1. KYTRIL [Concomitant]
     Indication: PRODUCT USED FOR UNKNOWN INDICATION
     Route: 041
  2. CARBOPLATIN [Suspect]
     Indication: LUNG NEOPLASM MALIGNANT
     Route: 041
     Dates: start: 20120131
  3. CARBOPLATIN [Suspect]
     Route: 041
     Dates: start: 20120306
  4. ALIMTA [Suspect]
     Route: 041
     Dates: start: 20120306
  5. ALIMTA [Suspect]
     Indication: LUNG NEOPLASM MALIGNANT
     Route: 041
     Dates: start: 20120131

REACTIONS (1)
  - PEPTIC ULCER [None]
